FAERS Safety Report 6654691-5 (Version None)
Quarter: 2010Q1

REPORT INFORMATION
  Report Type: 
  Country: None (occurrence: None)
  Receive Date: 20100326
  Receipt Date: 20100322
  Transmission Date: 20100710
  Serious: Yes (Death, Life-Threatening, Hospitalization)
  Sender: FDA-Public Use
  Company Number: FR-MERCK-1003FRA00075

PATIENT
  Age: 47 Year
  Sex: Female

DRUGS (12)
  1. ISENTRESS [Suspect]
     Indication: HIV INFECTION
     Route: 048
     Dates: start: 20100303, end: 20100317
  2. LAMIVUDINE [Concomitant]
     Indication: HIV INFECTION
     Route: 048
     Dates: start: 20100303, end: 20100317
  3. ATAZANAVIR SULFATE [Concomitant]
     Indication: HIV INFECTION
     Route: 048
     Dates: start: 20100303, end: 20100317
  4. RITONAVIR [Concomitant]
     Indication: HIV INFECTION
     Route: 048
     Dates: start: 20100303, end: 20100317
  5. MORPHINE [Concomitant]
     Route: 065
  6. TINZAPARIN SODIUM [Concomitant]
     Indication: PROPHYLAXIS
     Route: 065
     Dates: start: 20100226, end: 20100317
  7. TINZAPARIN SODIUM [Concomitant]
     Route: 048
     Dates: start: 20100226, end: 20100317
  8. METOCLOPRAMIDE [Concomitant]
     Indication: NAUSEA
     Route: 048
     Dates: start: 20100312, end: 20100317
  9. PACLITAXEL [Suspect]
     Indication: OVARIAN CANCER METASTATIC
     Route: 042
     Dates: start: 20100301, end: 20100301
  10. PACLITAXEL [Suspect]
     Route: 042
     Dates: start: 20100309, end: 20100309
  11. CARBOPLATIN [Suspect]
     Indication: OVARIAN CANCER METASTATIC
     Route: 042
     Dates: start: 20100301, end: 20100301
  12. CARBOPLATIN [Suspect]
     Route: 042
     Dates: start: 20100309, end: 20100309

REACTIONS (2)
  - FEBRILE BONE MARROW APLASIA [None]
  - SEPTIC SHOCK [None]
